FAERS Safety Report 24390615 (Version 1)
Quarter: 2024Q4

REPORT INFORMATION
  Report Type: Spontaneous
  Country: GB (occurrence: GB)
  Receive Date: 20241003
  Receipt Date: 20241003
  Transmission Date: 20250115
  Serious: Yes (Other)
  Sender: TEVA
  Company Number: None

PATIENT
  Age: 57 Year
  Sex: Female

DRUGS (1)
  1. LEVOTHYROXINE [Suspect]
     Active Substance: LEVOTHYROXINE
     Indication: Adverse drug reaction
     Dosage: 75MG, TEVA UK
     Route: 065
     Dates: start: 20240901

REACTIONS (4)
  - Cluster headache [Not Recovered/Not Resolved]
  - Medication error [Unknown]
  - Migraine [Not Recovered/Not Resolved]
  - Nausea [Not Recovered/Not Resolved]

NARRATIVE: CASE EVENT DATE: 20240901
